FAERS Safety Report 5029182-8 (Version None)
Quarter: 2006Q2

REPORT INFORMATION
  Report Type: 
  Country: None (occurrence: None)
  Receive Date: 20060613
  Receipt Date: 20060602
  Transmission Date: 20061013
  Serious: Yes (Other)
  Sender: FDA-Public Use
  Company Number: HQWYE953405JUN06

PATIENT
  Age: 43 Year
  Sex: Male

DRUGS (8)
  1. CYCLOSPORINE [Suspect]
     Indication: PROPHYLAXIS AGAINST TRANSPLANT REJECTION
     Dosage: 150 MG 1X PER 12 HR; ORAL
     Route: 048
     Dates: start: 20060312
  2. MYCOPHENOLATE MOFETIL [Concomitant]
  3. TMP-SMX (SULFAMETHOXAZOLE/TRIMETHOPRIM) [Concomitant]
  4. ACYCLOVIR [Concomitant]
  5. FOLIC ACID [Concomitant]
  6. VITAMIN B COMPLEX TAB [Concomitant]
  7. AMLODIPINE [Concomitant]
  8. RANITIDINE [Concomitant]

REACTIONS (2)
  - AMERICAN TRYPANOSOMIASIS [None]
  - PANNICULITIS [None]
